FAERS Safety Report 4998870-1 (Version None)
Quarter: 2006Q2

REPORT INFORMATION
  Report Type: 
  Country: None (occurrence: None)
  Receive Date: 20060510
  Receipt Date: 20060307
  Transmission Date: 20061013
  Serious: Yes (Hospitalization)
  Sender: FDA-Public Use
  Company Number: US-MERCK-0603USA01284

PATIENT
  Age: 47 Year
  Sex: Female
  Weight: 98 kg

DRUGS (7)
  1. VIOXX [Suspect]
     Indication: BACK PAIN
     Route: 048
  2. VIOXX [Suspect]
     Indication: PAIN IN EXTREMITY
     Route: 048
  3. OGEN [Concomitant]
     Route: 065
  4. VICODIN [Concomitant]
     Route: 065
  5. DIAZIDE [Concomitant]
     Route: 065
  6. ZOCOR [Concomitant]
     Route: 065
  7. NASACORT [Concomitant]
     Route: 065

REACTIONS (1)
  - CEREBROVASCULAR ACCIDENT [None]
